FAERS Safety Report 8414149-X (Version None)
Quarter: 2012Q2

REPORT INFORMATION
  Report Type: 
  Country: None (occurrence: None)
  Receive Date: 20120323
  Receipt Date: 20111213
  Transmission Date: 20120825
  Serious: Yes (Hospitalization)
  Sender: FDA-Public Use
  Company Number: 163-21880-11121725

PATIENT
  Age: 66 Year
  Sex: Male
  Weight: 74.3899 kg

DRUGS (17)
  1. REVLIMID [Suspect]
     Indication: MULTIPLE MYELOMA
     Dosage: 10 MG, DAILY X 21 DAYS, PO
     Route: 048
     Dates: start: 20110313
  2. ALBUTEROL (SALBUTAMOL) (UNKNOWN) [Concomitant]
  3. MUCINEX (GUAIFENESIN) (UNKNOWN) [Concomitant]
  4. CALCIUM (CALCIUM) (UNKNOWN) [Concomitant]
  5. MULTIVITAMINS (MULTIVITAMINS) (UNKNOWN) [Concomitant]
  6. DEXAMETHASONE [Concomitant]
  7. FISH OIL (FISH OIL) (UNKNOWN) [Concomitant]
  8. DILAUDID (HYDROMORPHONE HYDROCHLORIDE) (UNKNOWN) [Concomitant]
  9. TUMS (CALCIUM CARBONATE) (UNKNOWN) [Concomitant]
  10. OXYCONTIN [Concomitant]
  11. AMOXICILLIN [Concomitant]
  12. HYDROMORPHONE HCL [Concomitant]
  13. VITAMIN D (ERGOCALCIFEROL) (UNKNOWN) [Concomitant]
  14. CYMBALTA [Concomitant]
  15. MIRALAX (MACROGOL) (UNKNOWN) [Concomitant]
  16. OMEPRAZOLE [Concomitant]
  17. VITAMIN B6 (PYRIDOXINE HYDROCHLORIDE) (UNKNOWN) [Concomitant]

REACTIONS (1)
  - PNEUMONIA [None]
